FAERS Safety Report 6972994-1 (Version None)
Quarter: 2010Q3

REPORT INFORMATION
  Report Type: 
  Country: None (occurrence: None)
  Receive Date: 20100909
  Receipt Date: 20100825
  Transmission Date: 20110219
  Serious: Yes (Hospitalization)
  Sender: FDA-Public Use
  Company Number: DE-ALEXION-A201001074

PATIENT

DRUGS (34)
  1. SOLIRIS [Suspect]
     Indication: HAEMOLYTIC URAEMIC SYNDROME
     Dosage: 600 MG, SINGLE
     Route: 042
     Dates: start: 20080430, end: 20080430
  2. SOLIRIS [Suspect]
     Dosage: 1200 MG, SINGLE
     Route: 042
     Dates: start: 20090814, end: 20090814
  3. SOLIRIS [Suspect]
     Dosage: 900 MG, QW
     Route: 042
     Dates: start: 20090821, end: 20090904
  4. SOLIRIS [Suspect]
     Dosage: 1200 MG, Q2W
     Route: 042
     Dates: start: 20090911
  5. L-THYROXINE                        /00068001/ [Concomitant]
     Indication: AUTOIMMUNE THYROIDITIS
     Dosage: UNK
     Dates: start: 20050101, end: 20090101
  6. EUTHYROX [Concomitant]
     Indication: AUTOIMMUNE THYROIDITIS
     Dosage: UNK
     Dates: start: 20090701
  7. COTRIM FORTE EU RHO [Concomitant]
     Indication: URINARY TRACT INFECTION
     Dosage: UNK
     Dates: start: 20090810, end: 20100105
  8. NEXIUM [Concomitant]
     Indication: REFLUX OESOPHAGITIS
     Dosage: 40
     Dates: start: 20080201, end: 20090101
  9. VIGAUTOLETTEN [Concomitant]
     Indication: VITAMIN D DEFICIENCY
     Dosage: 1000
     Dates: start: 20090808
  10. FERRO SANOL COMP                   /01493401/ [Concomitant]
     Indication: IRON DEFICIENCY
     Dosage: 1
     Dates: start: 20080508
  11. CLONIDINE [Concomitant]
     Indication: HYPERTENSION
     Dosage: 2.5
     Dates: start: 20090820, end: 20090901
  12. PROGRAF [Concomitant]
     Indication: RENAL TRANSPLANT
     Dosage: 5
     Dates: start: 20090730, end: 20100601
  13. PROGRAF [Concomitant]
     Dosage: 4
     Dates: start: 20100701
  14. TORSEMIDE [Concomitant]
     Indication: RENAL DISORDER
     Dosage: 50
     Dates: start: 20090818, end: 20091001
  15. TORSEMIDE [Concomitant]
     Dosage: 10
  16. DECORTIN [Concomitant]
     Indication: RENAL TRANSPLANT
     Dosage: 30
     Dates: start: 20090804, end: 20090901
  17. DECORTIN [Concomitant]
     Dosage: 50
     Dates: start: 20090901, end: 20091101
  18. DECORTIN [Concomitant]
     Dosage: 35
     Dates: start: 20091101
  19. DECORTIN [Concomitant]
     Dosage: 15
     Dates: end: 20100501
  20. DECORTIN [Concomitant]
     Dosage: 10
     Dates: start: 20100601, end: 20100701
  21. DECORTIN [Concomitant]
     Dosage: 5
     Dates: start: 20100701
  22. CONCOR                             /00802601/ [Concomitant]
     Indication: HYPERTENSION
     Dosage: 2.5
     Dates: start: 20090814, end: 20090823
  23. CONCOR                             /00802601/ [Concomitant]
     Dosage: 5
     Dates: start: 20090824, end: 20090101
  24. CARMEN [Concomitant]
     Indication: HYPERTENSION
     Dosage: 20
     Dates: start: 20090821, end: 20091001
  25. PANTOZOL                           /01263202/ [Concomitant]
     Indication: REFLUX OESOPHAGITIS
     Dosage: 40
     Dates: start: 20090730, end: 20090901
  26. PANTOZOL                           /01263202/ [Concomitant]
     Dosage: 40
     Dates: start: 20091101
  27. PANTOZOL                           /01263202/ [Concomitant]
     Dosage: 80
     Dates: end: 20100501
  28. PANTOZOL                           /01263202/ [Concomitant]
     Dosage: 40
     Dates: start: 20100601
  29. VALINOR BRAUSETABLETTEN [Concomitant]
     Indication: HYPOKALAEMIA
     Dosage: 1
     Dates: start: 20090828, end: 20090901
  30. MYFORTIC                           /01275101/ [Concomitant]
     Indication: RENAL TRANSPLANT
     Dosage: 720
     Dates: start: 20090801, end: 20091101
  31. MYFORTIC                           /01275101/ [Concomitant]
     Dosage: 720
     Dates: end: 20100301
  32. ATACAND [Concomitant]
     Indication: HYPERTENSION
     Dosage: 32
     Dates: start: 20090826, end: 20090101
  33. ATACAND [Concomitant]
     Dosage: 8
     Dates: start: 20091001
  34. ATACAND [Concomitant]
     Dosage: 2

REACTIONS (1)
  - CYTOMEGALOVIRUS INFECTION [None]
